FAERS Safety Report 21383327 (Version 3)
Quarter: 2022Q4

REPORT INFORMATION
  Report Type: Spontaneous
  Country: KR (occurrence: KR)
  Receive Date: 20220927
  Receipt Date: 20221019
  Transmission Date: 20230113
  Serious: Yes (Death, Other)
  Sender: FDA-Public Use
  Company Number: KR-009507513-2209KOR008658

PATIENT
  Age: 42 Year
  Sex: Female
  Weight: 44.5 kg

DRUGS (14)
  1. PREVYMIS [Suspect]
     Active Substance: LETERMOVIR
     Indication: Antiviral prophylaxis
     Dosage: STRENGTH: 480 MG TAB, ONCE DAILY
     Route: 048
     Dates: start: 20210514, end: 20210521
  2. PREVYMIS [Suspect]
     Active Substance: LETERMOVIR
     Dosage: STRENGTH: 480 MG TAB, ONCE DAILY
     Route: 048
     Dates: start: 20210525, end: 20210601
  3. PREVYMIS [Suspect]
     Active Substance: LETERMOVIR
     Indication: Antiviral prophylaxis
     Dosage: STRENGTH: 480MG/24ML, ONCE DAILY
     Route: 042
     Dates: start: 20210522, end: 20210524
  4. ETHINYL ESTRADIOL\GESTODENE [Concomitant]
     Active Substance: ETHINYL ESTRADIOL\GESTODENE
     Indication: Vaginal haemorrhage
     Dosage: 1 DOSAGE FORM, QD
     Route: 048
     Dates: start: 20210430
  5. K CAB [Concomitant]
     Indication: Gastritis prophylaxis
     Dosage: 50 MILLIGRAM, QD
     Route: 048
     Dates: start: 20210505, end: 20210520
  6. K CAB [Concomitant]
     Dosage: 50 MILLIGRAM, QD
     Route: 048
     Dates: start: 20210526
  7. FOLIC ACID [Concomitant]
     Active Substance: FOLIC ACID
     Indication: Anaemia prophylaxis
     Dosage: 1 MILLIGRAM, QD
     Route: 048
     Dates: start: 20210505, end: 20210520
  8. FOLIC ACID [Concomitant]
     Active Substance: FOLIC ACID
     Dosage: 1 MILLIGRAM, QD
     Route: 048
     Dates: start: 20210526
  9. SULFAMETHOXAZOLE\TRIMETHOPRIM [Concomitant]
     Active Substance: SULFAMETHOXAZOLE\TRIMETHOPRIM
     Indication: Anaemia prophylaxis
     Dosage: 1 DOSAGE FORM, BID
     Route: 048
     Dates: start: 20210525
  10. VACRAX [ACICLOVIR] [Concomitant]
     Indication: Antiviral prophylaxis
     Dosage: 200 MILLIGRAM, BID
     Route: 048
     Dates: start: 20210525
  11. PREDNISOLONE [Concomitant]
     Active Substance: PREDNISOLONE
     Indication: Acute graft versus host disease in skin
     Dosage: 20 MILLIGRAM, QD
     Dates: start: 20210525, end: 20210530
  12. PREDNISOLONE [Concomitant]
     Active Substance: PREDNISOLONE
     Dosage: 10 MILLIGRAM, QD
     Dates: start: 20210610
  13. HYDRINE [HYDROXYCARBAMIDE] [Concomitant]
     Indication: Leukocytosis
     Dosage: 2000 MILLIGRAM, QD
     Dates: start: 20210608
  14. ALLEGRA [Concomitant]
     Active Substance: FEXOFENADINE HYDROCHLORIDE
     Indication: Acute graft versus host disease in skin
     Dosage: 180 MILLIGRAM, QD
     Dates: start: 20210602

REACTIONS (2)
  - Oxygen saturation decreased [Fatal]
  - Heart rate decreased [Fatal]

NARRATIVE: CASE EVENT DATE: 20210815
